FAERS Safety Report 23426602 (Version 1)
Quarter: 2024Q1

REPORT INFORMATION
  Report Type: Spontaneous
  Country: FR (occurrence: None)
  Receive Date: 20240122
  Receipt Date: 20240122
  Transmission Date: 20240409
  Serious: Yes (Other)
  Sender: FDA-Public Use
  Company Number: 2024A016142

PATIENT
  Age: 32 Year
  Sex: Female

DRUGS (2)
  1. ESOMEPRAZOLE [Interacting]
     Active Substance: ESOMEPRAZOLE
     Indication: Metabolic surgery
     Dosage: UNK
     Route: 048
  2. ESCITALOPRAM [Interacting]
     Active Substance: ESCITALOPRAM OXALATE
     Indication: Depression
     Dosage: 10 MILLIGRAM, 1/DAY
     Route: 048
     Dates: start: 202304, end: 202307

REACTIONS (2)
  - Serotonin syndrome [Recovered/Resolved]
  - Drug interaction [Unknown]

NARRATIVE: CASE EVENT DATE: 20230701
